FAERS Safety Report 5430931-5 (Version None)
Quarter: 2007Q3

REPORT INFORMATION
  Report Type: 
  Country: None (occurrence: None)
  Receive Date: 20070830
  Receipt Date: 20070824
  Transmission Date: 20080115
  Serious: Yes (Death)
  Sender: FDA-Public Use
  Company Number: FR-ELI_LILLY_AND_COMPANY-FR200708006269

PATIENT
  Age: 37 Year
  Sex: Female

DRUGS (4)
  1. ZYPREXA [Suspect]
     Indication: AGITATION
     Dosage: 10 MG, OTHER
     Route: 030
     Dates: start: 20070801, end: 20070801
  2. LOXAPAC [Concomitant]
     Indication: AGITATION
     Dosage: 250 MG, OTHER
     Route: 030
     Dates: start: 20070801, end: 20070801
  3. CLONAZEPAM [Concomitant]
     Indication: AGITATION
     Dosage: UNK, UNKNOWN
     Route: 065
     Dates: start: 20070801, end: 20070801
  4. VALIUM [Concomitant]
     Indication: AGITATION
     Dosage: UNK, UNKNOWN
     Route: 065
     Dates: start: 20070801, end: 20070801

REACTIONS (1)
  - PULMONARY EMBOLISM [None]
